FAERS Safety Report 18991038 (Version 1)
Quarter: 2021Q1

REPORT INFORMATION
  Report Type: Spontaneous
  Country: GB (occurrence: GB)
  Receive Date: 20210310
  Receipt Date: 20210310
  Transmission Date: 20210420
  Serious: Yes (Disabling, Other)
  Sender: FDA-Public Use
  Company Number: NVSC2021GB002396

PATIENT
  Age: 23 Year
  Sex: Female
  Weight: 53.97 kg

DRUGS (7)
  1. PREDNISOLONE. [Suspect]
     Active Substance: PREDNISOLONE
     Indication: ECZEMA
     Dosage: 6 DF, QD
     Route: 065
     Dates: start: 20170526
  2. MOMETASONE FUROATE. [Suspect]
     Active Substance: MOMETASONE FUROATE
     Indication: ECZEMA
     Dosage: 2 X 100 GRAM TUBES
     Route: 061
     Dates: start: 20170710, end: 20180419
  3. SERETIDE [Concomitant]
     Active Substance: FLUTICASONE PROPIONATE\SALMETEROL XINAFOATE
     Indication: PRODUCT USED FOR UNKNOWN INDICATION
     Dosage: UNK, UNKNOWN
     Route: 065
  4. SALBUTAMOL [Concomitant]
     Active Substance: ALBUTEROL
     Indication: PRODUCT USED FOR UNKNOWN INDICATION
     Dosage: UNK, UNKNOWN
     Route: 065
  5. PREDNISONE. [Suspect]
     Active Substance: PREDNISONE
     Indication: ECZEMA
     Dosage: 200 MG
     Route: 048
     Dates: start: 20170703, end: 20170708
  6. EUMOVATE [Suspect]
     Active Substance: CLOBETASONE BUTYRATE
     Indication: ECZEMA
     Dosage: 100 G
     Route: 061
     Dates: start: 20170421
  7. EUMOVATE [Suspect]
     Active Substance: CLOBETASONE BUTYRATE
     Dosage: 100 G
     Route: 061
     Dates: start: 20180215, end: 20180419

REACTIONS (19)
  - Chills [Recovered/Resolved]
  - Drug withdrawal syndrome [Recovered/Resolved with Sequelae]
  - Peripheral swelling [Recovered/Resolved]
  - Fluid retention [Unknown]
  - Skin texture abnormal [Unknown]
  - Skin fissures [Unknown]
  - Skin hypertrophy [Unknown]
  - Lymphadenopathy [Recovered/Resolved]
  - Hyperaesthesia [Recovered/Resolved with Sequelae]
  - Alopecia [Recovered/Resolved]
  - Skin exfoliation [Recovered/Resolved with Sequelae]
  - Pruritus [Recovered/Resolved]
  - Skin weeping [Unknown]
  - Skin warm [Unknown]
  - Erythema [Recovered/Resolved with Sequelae]
  - Dermatitis [Unknown]
  - Menstruation delayed [Recovered/Resolved]
  - Skin wrinkling [Recovered/Resolved with Sequelae]
  - Dry skin [Unknown]

NARRATIVE: CASE EVENT DATE: 20180401
